FAERS Safety Report 16413644 (Version 2)
Quarter: 2019Q2

REPORT INFORMATION
  Report Type: Report from Study
  Country: US (occurrence: US)
  Receive Date: 20190611
  Receipt Date: 20190613
  Transmission Date: 20190711
  Serious: Yes (Hospitalization)
  Sender: FDA-Public Use
  Company Number: US-GILEAD-2019-0412478

PATIENT
  Age: 68 Year
  Sex: Male

DRUGS (21)
  1. AMBRISENTAN [Suspect]
     Active Substance: AMBRISENTAN
     Indication: PULMONARY HYPERTENSION
     Dosage: 5 MG, BID
     Route: 065
  2. LASIX [Concomitant]
     Active Substance: FUROSEMIDE
  3. POTASSIUM CHLORIDE. [Concomitant]
     Active Substance: POTASSIUM CHLORIDE
  4. ASPIRIN [ACETYLSALICYLIC ACID] [Concomitant]
     Active Substance: ASPIRIN
  5. FENOFIBRATE. [Concomitant]
     Active Substance: FENOFIBRATE
  6. LORAZEPAM. [Concomitant]
     Active Substance: LORAZEPAM
  7. SOTALOL. [Concomitant]
     Active Substance: SOTALOL
  8. GLIPIZIDE. [Concomitant]
     Active Substance: GLIPIZIDE
  9. SPIRONOLACTONE. [Concomitant]
     Active Substance: SPIRONOLACTONE
  10. ASA [Concomitant]
     Active Substance: ASPIRIN
  11. AMBRISENTAN [Suspect]
     Active Substance: AMBRISENTAN
     Dosage: 10 MG, QD
     Route: 065
  12. GABAPENTIN. [Concomitant]
     Active Substance: GABAPENTIN
  13. PRAVASTATIN. [Concomitant]
     Active Substance: PRAVASTATIN
  14. PRADAXA [Concomitant]
     Active Substance: DABIGATRAN ETEXILATE MESYLATE
  15. AVODART [Concomitant]
     Active Substance: DUTASTERIDE
  16. TAMSULOSIN [Concomitant]
     Active Substance: TAMSULOSIN
  17. CITALOPRAM [Concomitant]
     Active Substance: CITALOPRAM HYDROBROMIDE
  18. DOXEPIN [Concomitant]
     Active Substance: DOXEPIN
  19. METOPROLOL TARTRATE. [Concomitant]
     Active Substance: METOPROLOL TARTRATE
  20. PRIMIDONE. [Concomitant]
     Active Substance: PRIMIDONE
  21. SAW PALMETTO EXTRACT [Concomitant]

REACTIONS (3)
  - Fluid retention [Unknown]
  - Arrhythmia [Unknown]
  - Off label use [Unknown]

NARRATIVE: CASE EVENT DATE: 20190516
